FAERS Safety Report 9683641 (Version 5)
Quarter: 2014Q1

REPORT INFORMATION
  Report Type: Spontaneous
  Country: TW (occurrence: TW)
  Receive Date: 20131112
  Receipt Date: 20140304
  Transmission Date: 20141002
  Serious: Yes (Hospitalization)
  Sender: FDA-Public Use
  Company Number: TW-PFIZER INC-2013316906

PATIENT
  Age: 85 Year
  Sex: Male

DRUGS (6)
  1. SUTENT [Suspect]
     Indication: RENAL CELL CARCINOMA
     Dosage: 50 MG, CYCLIC, ONCE DAILY, TWO WEEKS ON AND ONE WEEK OFF
     Route: 048
     Dates: start: 20130628, end: 20131030
  2. LASIX [Concomitant]
     Dosage: 0.5 MG, 1X/DAY
     Route: 048
  3. ASPIRIN [Concomitant]
     Dosage: 1 DF, 1X/DAY
     Route: 048
  4. APROVEL [Concomitant]
     Dosage: 1 DF, 1X/DAY
     Route: 048
  5. ADALAT [Concomitant]
     Dosage: 1 DF, 1X/DAY
     Route: 048
  6. CONCOR [Concomitant]
     Dosage: 2.5 MG, 1X/DAY
     Route: 048

REACTIONS (12)
  - Infectious colitis [Recovered/Resolved]
  - Sepsis [Recovered/Resolved]
  - Renal failure acute [Not Recovered/Not Resolved]
  - Anaemia [Not Recovered/Not Resolved]
  - Upper gastrointestinal haemorrhage [Recovered/Resolved]
  - Melaena [Recovered/Resolved]
  - Dizziness [Not Recovered/Not Resolved]
  - Dyspnoea [Not Recovered/Not Resolved]
  - Decreased appetite [Not Recovered/Not Resolved]
  - Muscular weakness [Not Recovered/Not Resolved]
  - Pancreatitis acute [Not Recovered/Not Resolved]
  - Hypertension [Unknown]
